FAERS Safety Report 4320749-9 (Version None)
Quarter: 2004Q1

REPORT INFORMATION
  Report Type: 
  Country: None (occurrence: None)
  Receive Date: 20040315
  Receipt Date: 20031218
  Transmission Date: 20041129
  Serious: No
  Sender: FDA-Public Use
  Company Number: 2003183193US

PATIENT
  Age: 56 Year
  Sex: Female

DRUGS (2)
  1. BEXTRA [Suspect]
     Indication: OSTEOARTHRITIS
     Dosage: 20 MG
     Dates: start: 20030301
  2. CELEBREX [Suspect]
     Dates: end: 20021001

REACTIONS (1)
  - VAGINAL DISCHARGE [None]
